FAERS Safety Report 7354506-6 (Version None)
Quarter: 2011Q1

REPORT INFORMATION
  Report Type: 
  Country: None (occurrence: None)
  Receive Date: 20110316
  Receipt Date: 20100817
  Transmission Date: 20110831
  Serious: Yes (Hospitalization)
  Sender: FDA-Public Use
  Company Number: US-BAYER-201028585NA

PATIENT
  Sex: Female
  Weight: 68.027 kg

DRUGS (14)
  1. ERRIN [Concomitant]
     Dosage: UNK
     Dates: start: 20050627
  2. NORETHINDRONE [Concomitant]
     Dosage: UNK
     Dates: start: 20060601
  3. CLINDAMYCIN [Concomitant]
     Dosage: 60 G, UNK
     Dates: start: 20060628
  4. DOXYCYCLINE HYCLATE [Concomitant]
     Dosage: 100 MG, UNK
     Dates: start: 20060628
  5. UNCODEABLE ^UNCLASSIFIABLE^ [Concomitant]
     Dosage: 875 MG, UNK
     Dates: start: 20060703
  6. UNCODEABLE ^UNCLASSIFIABLE^ [Concomitant]
     Dosage: 500 MG, UNK
     Dates: start: 20060720
  7. ERRIN [Concomitant]
     Dosage: UNK
     Dates: start: 20050822, end: 20060501
  8. MONONESSA-28 [Concomitant]
  9. NITROFURANTOIN [Concomitant]
     Dosage: UNK
     Dates: start: 20060720
  10. ERRIN [Concomitant]
     Dosage: UNK
     Dates: start: 20050331, end: 20050519
  11. YASMIN [Suspect]
     Indication: ACNE
     Dosage: UNK UNK, UNK
     Route: 048
     Dates: start: 20040101, end: 20100101
  12. UNCODEABLE ^UNCLASSIFIABLE^ [Concomitant]
     Dosage: 500 MG, UNK
     Dates: start: 20060720
  13. PREDNISONE [Concomitant]
     Dosage: 20 MG, UNK
     Dates: start: 20060720
  14. MULTIVITAMIN [Concomitant]
     Dosage: UNK
     Dates: start: 20050501

REACTIONS (1)
  - GALLBLADDER INJURY [None]
